FAERS Safety Report 14770256 (Version 1)
Quarter: 2018Q2

REPORT INFORMATION
  Report Type: Spontaneous
  Country: DE (occurrence: DE)
  Receive Date: 20180417
  Receipt Date: 20180417
  Transmission Date: 20180711
  Serious: Yes (Disabling, Other)
  Sender: FDA-Public Use
  Company Number: DE-ASTELLAS-2018US012331

PATIENT
  Sex: Male

DRUGS (2)
  1. PLETAL [Concomitant]
     Active Substance: CILOSTAZOL
     Indication: PERIPHERAL ARTERIAL OCCLUSIVE DISEASE
     Dosage: 3YEARS AGO, TWICE DAILY
     Route: 065
  2. XTANDI [Suspect]
     Active Substance: ENZALUTAMIDE
     Indication: PRODUCT USED FOR UNKNOWN INDICATION
     Dosage: 160 MG, ONCE DAILY (40MG, 4 DF DAILY)
     Route: 065
     Dates: start: 201709

REACTIONS (4)
  - Muscle spasms [Recovering/Resolving]
  - Prostatic specific antigen increased [Unknown]
  - Gait disturbance [Not Recovered/Not Resolved]
  - Diarrhoea [Recovering/Resolving]
